FAERS Safety Report 7290380-4 (Version None)
Quarter: 2011Q1

REPORT INFORMATION
  Report Type: 
  Country: None (occurrence: None)
  Receive Date: 20110214
  Receipt Date: 20110204
  Transmission Date: 20110831
  Serious: Yes (Hospitalization, Other)
  Sender: FDA-Public Use
  Company Number: US-ASTRAZENECA-2011SE06397

PATIENT
  Age: 72 Year
  Sex: Female
  Weight: 106.1 kg

DRUGS (6)
  1. OXYCODONE [Concomitant]
     Dosage: PRN
  2. GABAPENTIN [Concomitant]
  3. ARIMIDEX [Suspect]
     Indication: BREAST CANCER
     Route: 048
     Dates: start: 20100401
  4. LOVASA [Concomitant]
     Dosage: DAILY
     Dates: start: 20100101
  5. NEXIUM [Suspect]
     Indication: OESOPHAGEAL DISORDER
     Route: 048
     Dates: start: 20080101
  6. SEROQUEL [Suspect]
     Indication: SCHIZOAFFECTIVE DISORDER
     Dosage: DAILY
     Route: 048
     Dates: start: 20080101

REACTIONS (3)
  - FATIGUE [None]
  - BREAST CANCER [None]
  - HYSTERECTOMY [None]
